FAERS Safety Report 20711155 (Version 2)
Quarter: 2022Q3

REPORT INFORMATION
  Report Type: Spontaneous
  Country: US (occurrence: US)
  Receive Date: 20220414
  Receipt Date: 20220713
  Transmission Date: 20221026
  Serious: No
  Sender: FDA-Public Use
  Company Number: US-MYOVANT SCIENCES GMBH-2022MYSCI0200625

PATIENT
  Age: 75 Year
  Sex: Male
  Weight: 60.317 kg

DRUGS (8)
  1. ORGOVYX [Suspect]
     Active Substance: RELUGOLIX
     Indication: Prostate cancer
     Dosage: 360 MILLIGRAM, ONE TIME DOSE
     Route: 048
     Dates: start: 20220210, end: 20220210
  2. ORGOVYX [Suspect]
     Active Substance: RELUGOLIX
     Dosage: 120 MILLIGRAM, QD
     Route: 048
     Dates: start: 202202
  3. HYDROXYUREA [Concomitant]
     Active Substance: HYDROXYUREA
     Indication: Myeloproliferative neoplasm
     Dosage: UNK
     Route: 048
  4. DILTIAZEM [Concomitant]
     Active Substance: DILTIAZEM
     Indication: Atrial fibrillation
     Dosage: UNK
     Route: 048
  5. FLECAINIDE [Concomitant]
     Active Substance: FLECAINIDE
     Indication: Atrial fibrillation
     Dosage: UNK
     Route: 048
  6. ASPIRIN [Concomitant]
     Active Substance: ASPIRIN
     Indication: Atrial fibrillation
     Dosage: UNK
     Route: 048
  7. ROSUVASTATIN [Concomitant]
     Active Substance: ROSUVASTATIN
     Indication: Blood cholesterol
     Dosage: UNK
     Route: 048
  8. PHYTOSTEROLS [Concomitant]
     Active Substance: PHYTOSTEROLS
     Indication: Blood cholesterol
     Dosage: UNK
     Route: 048

REACTIONS (7)
  - Neuropathy peripheral [Not Recovered/Not Resolved]
  - Memory impairment [Unknown]
  - Alopecia [Unknown]
  - Penile size reduced [Unknown]
  - Bradyphrenia [Unknown]
  - Fatigue [Unknown]
  - Constipation [Recovered/Resolved]

NARRATIVE: CASE EVENT DATE: 20220201
